FAERS Safety Report 25050261 (Version 2)
Quarter: 2025Q2

REPORT INFORMATION
  Report Type: Spontaneous
  Country: GB (occurrence: GB)
  Receive Date: 20250307
  Receipt Date: 20250603
  Transmission Date: 20250716
  Serious: Yes (Life-Threatening, Hospitalization)
  Sender: MYLAN
  Company Number: GB-MYLANLABS-2025M1019631

PATIENT

DRUGS (48)
  1. EPINEPHRINE [Suspect]
     Active Substance: EPINEPHRINE
     Indication: Anaphylactic reaction
  2. EPINEPHRINE [Suspect]
     Active Substance: EPINEPHRINE
  3. EPINEPHRINE [Suspect]
     Active Substance: EPINEPHRINE
     Route: 042
  4. EPINEPHRINE [Suspect]
     Active Substance: EPINEPHRINE
     Route: 042
  5. EPINEPHRINE [Suspect]
     Active Substance: EPINEPHRINE
  6. EPINEPHRINE [Suspect]
     Active Substance: EPINEPHRINE
  7. EPINEPHRINE [Suspect]
     Active Substance: EPINEPHRINE
     Route: 042
  8. EPINEPHRINE [Suspect]
     Active Substance: EPINEPHRINE
     Route: 042
  9. CEFUROXIME [Suspect]
     Active Substance: CEFUROXIME
     Indication: Urinary tract infection enterococcal
  10. CEFUROXIME [Suspect]
     Active Substance: CEFUROXIME
     Route: 042
  11. CEFUROXIME [Suspect]
     Active Substance: CEFUROXIME
     Route: 042
  12. CEFUROXIME [Suspect]
     Active Substance: CEFUROXIME
  13. GENTAMICIN [Concomitant]
     Active Substance: GENTAMICIN
     Indication: Urinary tract infection enterococcal
  14. GENTAMICIN [Concomitant]
     Active Substance: GENTAMICIN
     Route: 042
  15. GENTAMICIN [Concomitant]
     Active Substance: GENTAMICIN
     Route: 042
  16. GENTAMICIN [Concomitant]
     Active Substance: GENTAMICIN
  17. SEVOFLURANE [Concomitant]
     Active Substance: SEVOFLURANE
     Indication: Endotracheal intubation
  18. SEVOFLURANE [Concomitant]
     Active Substance: SEVOFLURANE
     Route: 055
  19. SEVOFLURANE [Concomitant]
     Active Substance: SEVOFLURANE
     Route: 055
  20. SEVOFLURANE [Concomitant]
     Active Substance: SEVOFLURANE
  21. PROPOFOL [Concomitant]
     Active Substance: PROPOFOL
     Indication: Endotracheal intubation
  22. PROPOFOL [Concomitant]
     Active Substance: PROPOFOL
     Route: 055
  23. PROPOFOL [Concomitant]
     Active Substance: PROPOFOL
     Route: 055
  24. PROPOFOL [Concomitant]
     Active Substance: PROPOFOL
  25. ATRACURIUM [Concomitant]
     Active Substance: ATRACURIUM
     Indication: Endotracheal intubation
  26. ATRACURIUM [Concomitant]
     Active Substance: ATRACURIUM
     Route: 055
  27. ATRACURIUM [Concomitant]
     Active Substance: ATRACURIUM
     Route: 055
  28. ATRACURIUM [Concomitant]
     Active Substance: ATRACURIUM
  29. LEVOBUPIVACAINE [Concomitant]
     Active Substance: LEVOBUPIVACAINE
     Indication: Local anaesthesia
  30. LEVOBUPIVACAINE [Concomitant]
     Active Substance: LEVOBUPIVACAINE
     Route: 065
  31. LEVOBUPIVACAINE [Concomitant]
     Active Substance: LEVOBUPIVACAINE
     Route: 065
  32. LEVOBUPIVACAINE [Concomitant]
     Active Substance: LEVOBUPIVACAINE
  33. DEXAMETHASONE [Concomitant]
     Active Substance: DEXAMETHASONE
     Indication: Urinary tract infection enterococcal
  34. DEXAMETHASONE [Concomitant]
     Active Substance: DEXAMETHASONE
     Route: 042
  35. DEXAMETHASONE [Concomitant]
     Active Substance: DEXAMETHASONE
     Route: 042
  36. DEXAMETHASONE [Concomitant]
     Active Substance: DEXAMETHASONE
  37. ELECTROLYTES NOS [Concomitant]
     Active Substance: ELECTROLYTES NOS
     Indication: Fluid replacement
  38. ELECTROLYTES NOS [Concomitant]
     Active Substance: ELECTROLYTES NOS
     Route: 065
  39. ELECTROLYTES NOS [Concomitant]
     Active Substance: ELECTROLYTES NOS
     Route: 065
  40. ELECTROLYTES NOS [Concomitant]
     Active Substance: ELECTROLYTES NOS
  41. HYDROCORTISONE [Concomitant]
     Active Substance: HYDROCORTISONE
     Indication: Anaphylactic reaction
  42. HYDROCORTISONE [Concomitant]
     Active Substance: HYDROCORTISONE
     Route: 042
  43. HYDROCORTISONE [Concomitant]
     Active Substance: HYDROCORTISONE
     Route: 042
  44. HYDROCORTISONE [Concomitant]
     Active Substance: HYDROCORTISONE
  45. CHLORPHENIRAMINE MALEATE [Concomitant]
     Active Substance: CHLORPHENIRAMINE MALEATE
     Indication: Anaphylactic reaction
  46. CHLORPHENIRAMINE MALEATE [Concomitant]
     Active Substance: CHLORPHENIRAMINE MALEATE
     Route: 042
  47. CHLORPHENIRAMINE MALEATE [Concomitant]
     Active Substance: CHLORPHENIRAMINE MALEATE
     Route: 042
  48. CHLORPHENIRAMINE MALEATE [Concomitant]
     Active Substance: CHLORPHENIRAMINE MALEATE

REACTIONS (3)
  - Anaphylactic reaction [Recovered/Resolved]
  - Toxicity to various agents [Recovered/Resolved]
  - Stress cardiomyopathy [Recovered/Resolved]
